FAERS Safety Report 9344785 (Version 2)
Quarter: 2013Q2

REPORT INFORMATION
  Report Type: Spontaneous
  Country: US (occurrence: US)
  Receive Date: 20130612
  Receipt Date: 20130628
  Transmission Date: 20140414
  Serious: Yes (Hospitalization, Other)
  Sender: FDA-Public Use
  Company Number: US-GLAXOSMITHKLINE-A1023715A

PATIENT
  Age: 52 Year
  Sex: Male

DRUGS (9)
  1. LAMICTAL XR [Suspect]
     Indication: CONVULSION
     Route: 048
     Dates: start: 20130103
  2. TYLENOL [Suspect]
     Indication: PRODUCT USED FOR UNKNOWN INDICATION
     Route: 065
  3. DEPAKOTE ER [Suspect]
     Indication: CONVULSION
     Dosage: 1500MG TWICE PER DAY
     Route: 048
  4. TRILEPTAL [Suspect]
     Indication: CONVULSION
     Dosage: 750MG UNKNOWN
     Route: 048
  5. NORDITROPIN [Concomitant]
  6. BUSPAR [Concomitant]
  7. LOVASTATIN [Concomitant]
  8. NIASPAN [Concomitant]
  9. MULTIVITAMIN [Concomitant]

REACTIONS (44)
  - Meningitis aseptic [Recovered/Resolved]
  - Metabolic encephalopathy [Recovered/Resolved]
  - Inappropriate antidiuretic hormone secretion [Recovered/Resolved]
  - Pneumothorax traumatic [Recovered/Resolved]
  - Sepsis [Recovered/Resolved]
  - Meningitis viral [Recovered/Resolved]
  - Drug-induced liver injury [Recovered/Resolved]
  - Pulmonary amyloidosis [Recovered/Resolved]
  - Electrocardiogram ST segment depression [Recovered/Resolved]
  - Electrocardiogram T wave inversion [Recovered/Resolved]
  - Pyrexia [Recovered/Resolved]
  - Nausea [Recovered/Resolved]
  - Vomiting [Recovered/Resolved]
  - Lethargy [Recovered/Resolved]
  - Hyponatraemia [Recovered/Resolved]
  - Transaminases increased [Recovered/Resolved]
  - Thrombocytopenia [Recovered/Resolved]
  - Fall [Recovered/Resolved]
  - Mental status changes [Recovered/Resolved]
  - Headache [Recovered/Resolved]
  - Pulmonary mass [Unknown]
  - Atelectasis [Recovered/Resolved]
  - Total lung capacity decreased [Recovered/Resolved]
  - Sinus tachycardia [Recovered/Resolved]
  - Defect conduction intraventricular [Recovered/Resolved]
  - Supraventricular extrasystoles [Recovered/Resolved]
  - Tachypnoea [Recovered/Resolved]
  - Hypertension [Recovered/Resolved]
  - Chills [Recovered/Resolved]
  - Pain [Recovered/Resolved]
  - Malaise [Recovered/Resolved]
  - Confusional state [Recovered/Resolved]
  - Cough [Recovered/Resolved]
  - Abdominal pain [Recovered/Resolved]
  - Liver function test abnormal [Recovered/Resolved]
  - Agitation [Recovered/Resolved]
  - Anaemia [Recovered/Resolved]
  - White blood cell count decreased [Recovered/Resolved]
  - Blood creatine phosphokinase increased [Recovered/Resolved]
  - Blood alkaline phosphatase increased [Recovered/Resolved]
  - Aspartate aminotransferase increased [Recovered/Resolved]
  - Alanine aminotransferase increased [Recovered/Resolved]
  - Blood bilirubin increased [Recovered/Resolved]
  - Diarrhoea [Recovered/Resolved]
